FAERS Safety Report 9849809 (Version 7)
Quarter: 2015Q1

REPORT INFORMATION
  Report Type: Spontaneous
  Country: GB (occurrence: GB)
  Receive Date: 20140128
  Receipt Date: 20140310
  Transmission Date: 20150721
  Serious: Yes (Other)
  Sender: FDA-Public Use
  Company Number: GB-MYLANLABS-2014S1000843

PATIENT
  Sex: Female

DRUGS (20)
  1. CICLOSPORIN [Suspect]
     Active Substance: CYCLOSPORINE
     Indication: URTICARIA CHRONIC
  2. FEXOFENADINE [Suspect]
     Active Substance: FEXOFENADINE\FEXOFENADINE HYDROCHLORIDE
     Indication: ANGIOEDEMA
  3. PREDNISOLONE. [Suspect]
     Active Substance: PREDNISOLONE
     Indication: ANGIOEDEMA
     Dosage: 25-40 MG PER WEEK FOR THREE WEEKS
  4. CICLOSPORIN [Suspect]
     Active Substance: CYCLOSPORINE
     Indication: ANGIOEDEMA
  5. HYDROXYZINE [Suspect]
     Active Substance: HYDROXYZINE\HYDROXYZINE HYDROCHLORIDE
     Indication: URTICARIA CHRONIC
  6. METHOTREXATE [Suspect]
     Active Substance: METHOTREXATE
     Indication: URTICARIA CHRONIC
     Route: 048
  7. HYDROXYCHLOROQUINE [Suspect]
     Active Substance: HYDROXYCHLOROQUINE
     Indication: ANGIOEDEMA
  8. LORATADINE. [Suspect]
     Active Substance: LORATADINE
     Indication: URTICARIA CHRONIC
     Route: 048
  9. DAPSONE. [Suspect]
     Active Substance: DAPSONE
     Indication: ANGIOEDEMA
  10. DAPSONE. [Suspect]
     Active Substance: DAPSONE
     Indication: URTICARIA CHRONIC
  11. HYDROXYCHLOROQUINE [Suspect]
     Active Substance: HYDROXYCHLOROQUINE
     Indication: URTICARIA CHRONIC
  12. HYDROXYZINE [Suspect]
     Active Substance: HYDROXYZINE\HYDROXYZINE HYDROCHLORIDE
     Indication: ANGIOEDEMA
  13. CETIRIZINE [Suspect]
     Active Substance: CETIRIZINE HYDROCHLORIDE
     Indication: ANGIOEDEMA
  14. LORATADINE. [Suspect]
     Active Substance: LORATADINE
     Indication: ANGIOEDEMA
     Route: 048
  15. FEXOFENADINE [Suspect]
     Active Substance: FEXOFENADINE\FEXOFENADINE HYDROCHLORIDE
     Indication: URTICARIA CHRONIC
  16. CETIRIZINE [Suspect]
     Active Substance: CETIRIZINE HYDROCHLORIDE
     Indication: URTICARIA CHRONIC
  17. METHOTREXATE [Suspect]
     Active Substance: METHOTREXATE
     Indication: ANGIOEDEMA
     Route: 048
  18. HYDROXYCHLOROQUINE [Suspect]
     Active Substance: HYDROXYCHLOROQUINE
     Indication: ANGIOEDEMA
  19. HYDROXYCHLOROQUINE [Suspect]
     Active Substance: HYDROXYCHLOROQUINE
     Indication: URTICARIA CHRONIC
  20. PREDNISOLONE. [Suspect]
     Active Substance: PREDNISOLONE
     Indication: URTICARIA CHRONIC
     Dosage: 25-40 MG PER WEEK FOR THREE WEEKS

REACTIONS (6)
  - Urticaria [Not Recovered/Not Resolved]
  - Drug effect incomplete [Not Recovered/Not Resolved]
  - Blood pressure increased [Unknown]
  - Asthma [Not Recovered/Not Resolved]
  - Angioedema [Not Recovered/Not Resolved]
  - Drug ineffective [Unknown]
